FAERS Safety Report 8981162 (Version 2)
Quarter: 2012Q4

REPORT INFORMATION
  Report Type: Report from Study
  Country: AR (occurrence: AR)
  Receive Date: 20121221
  Receipt Date: 20121228
  Transmission Date: 20130627
  Serious: Yes (Hospitalization)
  Sender: FDA-Public Use
  Company Number: AR-GLAXOSMITHKLINE-Z0018086A

PATIENT
  Age: 60 Year
  Sex: Female
  Weight: 79 kg

DRUGS (1)
  1. PAZOPANIB [Suspect]
     Indication: RENAL CELL CARCINOMA
     Dosage: 600MG Per day
     Route: 048
     Dates: start: 20121024

REACTIONS (1)
  - Infected skin ulcer [Not Recovered/Not Resolved]
